FAERS Safety Report 18161930 (Version 1)
Quarter: 2020Q3

REPORT INFORMATION
  Report Type: Spontaneous
  Country: US (occurrence: US)
  Receive Date: 20200818
  Receipt Date: 20200818
  Transmission Date: 20201103
  Serious: Yes (Other)
  Sender: FDA-Public Use
  Company Number: US-GLAXOSMITHKLINE-US2020164670

PATIENT
  Age: 53 Year

DRUGS (1)
  1. ZANTAC [Suspect]
     Active Substance: RANITIDINE HYDROCHLORIDE

REACTIONS (4)
  - Small cell lung cancer [Unknown]
  - Breast cancer [Unknown]
  - Ovarian cancer [Unknown]
  - Lung neoplasm malignant [Unknown]
